FAERS Safety Report 16207977 (Version 1)
Quarter: 2019Q2

REPORT INFORMATION
  Report Type: Spontaneous
  Country: US (occurrence: US)
  Receive Date: 20190313
  Receipt Date: 20190313
  Transmission Date: 20190711
  Serious: Yes (Hospitalization)
  Sender: FDA-Public Use
  Company Number: None

PATIENT
  Age: 35 Year
  Sex: Male

DRUGS (4)
  1. HYDROXYUREA 500 MG CAP [Suspect]
     Active Substance: HYDROXYUREA
     Indication: SICKLE CELL TRAIT
     Dates: start: 20181205
  2. FOLIC ACID. [Concomitant]
     Active Substance: FOLIC ACID
  3. AMLODIPINE DESYLATE [Concomitant]
  4. EXJADE [Suspect]
     Active Substance: DEFERASIROX
     Indication: SICKLE CELL TRAIT
     Route: 048
     Dates: start: 20130816

REACTIONS (2)
  - Headache [None]
  - Abdominal pain upper [None]
